FAERS Safety Report 7810081-0 (Version None)
Quarter: 2011Q4

REPORT INFORMATION
  Report Type: 
  Country: None (occurrence: None)
  Receive Date: 20111012
  Receipt Date: 20111005
  Transmission Date: 20120403
  Serious: Yes (Other)
  Sender: FDA-Public Use
  Company Number: JP-BAXTER-2011BH031723

PATIENT
  Age: 62 Year
  Sex: Female

DRUGS (15)
  1. OXYCONTIN [Suspect]
     Route: 048
     Dates: start: 20100916, end: 20100922
  2. PREDNISOLONE [Suspect]
     Indication: NON-HODGKIN'S LYMPHOMA
     Route: 065
  3. MORPHINE HCL ELIXIR [Concomitant]
     Indication: CANCER PAIN
     Route: 048
     Dates: start: 20100825, end: 20100905
  4. POLARAMINE [Concomitant]
     Indication: PRODUCT USED FOR UNKNOWN INDICATION
     Route: 065
     Dates: start: 20100902
  5. LANSOPRAZOLE [Concomitant]
     Indication: PROPHYLAXIS
     Route: 048
     Dates: start: 20100825
  6. IBUPROFEN [Concomitant]
     Indication: PROPHYLAXIS
     Route: 065
     Dates: start: 20100902
  7. CYCLOPHOSPHAMIDE [Suspect]
     Indication: NON-HODGKIN'S LYMPHOMA
     Route: 065
     Dates: start: 20100825
  8. GRANISETRON HYDROCHLORIDE [Concomitant]
     Indication: PROPHYLAXIS
     Route: 065
     Dates: start: 20100825
  9. OXYCONTIN [Suspect]
     Indication: CANCER PAIN
     Route: 048
     Dates: start: 20100825, end: 20100915
  10. OXYCONTIN [Suspect]
     Route: 048
     Dates: start: 20101005, end: 20101013
  11. DOXORUBICIN HCL [Suspect]
     Indication: NON-HODGKIN'S LYMPHOMA
     Route: 065
     Dates: start: 20100825
  12. OXYCONTIN [Suspect]
     Route: 048
     Dates: start: 20100923, end: 20101004
  13. RITUXAN [Concomitant]
     Indication: NON-HODGKIN'S LYMPHOMA
     Route: 065
     Dates: start: 20100902
  14. SULFAMETHOXAZOLE [Concomitant]
     Indication: PROPHYLAXIS
     Route: 048
     Dates: start: 20100909
  15. VINCRISTINE SULFATE [Suspect]
     Indication: NON-HODGKIN'S LYMPHOMA
     Route: 065
     Dates: start: 20100825

REACTIONS (5)
  - DEEP VEIN THROMBOSIS [None]
  - CONSTIPATION [None]
  - NEUTROPHIL COUNT DECREASED [None]
  - NAUSEA [None]
  - FIBRIN DEGRADATION PRODUCTS INCREASED [None]
